FAERS Safety Report 15251641 (Version 1)
Quarter: 2018Q3

REPORT INFORMATION
  Report Type: Report from Study
  Country: US (occurrence: US)
  Receive Date: 20180807
  Receipt Date: 20180807
  Transmission Date: 20181010
  Serious: Yes (Other)
  Sender: FDA-Public Use
  Company Number: US-MYLANLABS-2018M1023887

PATIENT
  Sex: Male
  Weight: 98.42 kg

DRUGS (1)
  1. GLATIRAMER ACETATE INJECTION [Suspect]
     Active Substance: GLATIRAMER ACETATE
     Indication: MULTIPLE SCLEROSIS
     Dosage: 40 MG, 3XW
     Route: 058

REACTIONS (7)
  - Muscle spasms [Recovered/Resolved]
  - Injection site bruising [Unknown]
  - Injection site necrosis [Not Recovered/Not Resolved]
  - Back pain [Unknown]
  - Injection site erythema [Unknown]
  - Dyspnoea [Unknown]
  - Injection site atrophy [Not Recovered/Not Resolved]
